FAERS Safety Report 16028515 (Version 1)
Quarter: 2019Q1

REPORT INFORMATION
  Report Type: Spontaneous
  Country: TG (occurrence: TG)
  Receive Date: 20190304
  Receipt Date: 20190304
  Transmission Date: 20190418
  Serious: Yes (Other)
  Sender: FDA-Public Use
  Company Number: TG-SUN PHARMACEUTICAL INDUSTRIES LTD-2019RR-200336

PATIENT
  Age: 92 Year
  Sex: Male

DRUGS (17)
  1. FUROSEMIDE. [Interacting]
     Active Substance: FUROSEMIDE
     Indication: OEDEMA PERIPHERAL
     Dosage: 40 MILLIGRAM IN THE MORNING
     Route: 065
  2. PERMIXON [Concomitant]
     Active Substance: HERBALS\SAW PALMETTO
     Indication: BENIGN PROSTATIC HYPERPLASIA
     Dosage: IN THE MORNING AND IN THE EVENING
     Route: 065
  3. TRIVASTAL [Concomitant]
     Active Substance: PIRIBEDIL
     Indication: TREMOR
     Dosage: 50 MILLIGRAM, DAILY
     Route: 065
  4. RENUTRYL DRINK [Concomitant]
     Indication: MALNUTRITION
     Route: 065
  5. BISOPROLOL [Interacting]
     Active Substance: BISOPROLOL
     Indication: ATRIAL FIBRILLATION
     Dosage: 1.25 MILLIGRAM, DAILY
     Route: 065
  6. ALPRAZOLAM. [Concomitant]
     Active Substance: ALPRAZOLAM
     Indication: INSOMNIA
     Dosage: 1/2 TABLET IN THE EVENING
     Route: 065
  7. PARACETAMOL [Concomitant]
     Active Substance: ACETAMINOPHEN
     Indication: PAIN
     Dosage: 1 GRAM, TID
     Route: 065
  8. BISOPROLOL [Interacting]
     Active Substance: BISOPROLOL
     Indication: ARRHYTHMIA
     Dosage: 2.5 MILLIGRAM, DAILY
     Route: 065
  9. LAROXYL [Interacting]
     Active Substance: AMITRIPTYLINE HYDROCHLORIDE
     Indication: PRODUCT USED FOR UNKNOWN INDICATION
     Dosage: 25 MILLIGRAM IN THE MORNING AND IN THE EVENING
     Route: 065
  10. STABLON [Concomitant]
     Active Substance: TIANEPTINE
     Indication: PRODUCT USED FOR UNKNOWN INDICATION
     Dosage: 12.5 MILLIGRAM, TID
     Route: 065
  11. LYSINE SALICYLATE [Concomitant]
     Indication: PROPHYLAXIS
     Dosage: 75 MILLIGRAM, DAILY
     Route: 065
  12. ADENURIC [Concomitant]
     Active Substance: FEBUXOSTAT
     Indication: GOUT
     Dosage: 80 MILLIGRAM IN THE MORNING
     Route: 065
  13. KAYEXALATE [Concomitant]
     Active Substance: SODIUM POLYSTYRENE SULFONATE
     Indication: PRODUCT USED FOR UNKNOWN INDICATION
     Dosage: SINGLE DOSE
     Route: 065
  14. FORADYL [Concomitant]
     Indication: PRODUCT USED FOR UNKNOWN INDICATION
     Dosage: 1 PUFFS IN THE MORNING AND IN THE EVENING
     Route: 065
  15. ALFUZOSIN [Suspect]
     Active Substance: ALFUZOSIN
     Indication: BENIGN PROSTATIC HYPERPLASIA
     Dosage: 10 MILLIGRAM, DAILY
     Route: 065
  16. MINOFIL [Concomitant]
     Indication: PRODUCT USED FOR UNKNOWN INDICATION
     Dosage: 1 AMPOULE IN THE MORNING
     Route: 065
  17. CALCIPARINE [Concomitant]
     Active Substance: HEPARIN CALCIUM
     Indication: PROPHYLAXIS
     Dosage: PREVENTIVE DOSE
     Route: 065

REACTIONS (2)
  - Drug interaction [Unknown]
  - Hypotension [Unknown]
